FAERS Safety Report 18927781 (Version 1)
Quarter: 2021Q1

REPORT INFORMATION
  Report Type: Spontaneous
  Country: US (occurrence: US)
  Receive Date: 20210223
  Receipt Date: 20210223
  Transmission Date: 20210420
  Serious: No
  Sender: FDA-Public Use
  Company Number: US-FERRINGPH-2020FE05899

PATIENT
  Sex: Female

DRUGS (2)
  1. DESMOPRESSIN [Suspect]
     Active Substance: DESMOPRESSIN
     Indication: HYPOPITUITARISM
     Dosage: 3 TO 4 SPRAYS, DAILY
     Route: 045
     Dates: end: 20200822
  2. DESMOPRESSIN [Suspect]
     Active Substance: DESMOPRESSIN
     Dosage: 2 SPRAYS, DAILY
     Route: 045
     Dates: start: 202008, end: 20200822

REACTIONS (2)
  - Fatigue [Recovering/Resolving]
  - Weight increased [Recovered/Resolved]

NARRATIVE: CASE EVENT DATE: 2020
